FAERS Safety Report 6889198-3 (Version None)
Quarter: 2010Q3

REPORT INFORMATION
  Report Type: 
  Country: None (occurrence: None)
  Receive Date: 20100730
  Receipt Date: 20080117
  Transmission Date: 20110219
  Serious: No
  Sender: FDA-Public Use
  Company Number: US-PFIZER INC-2008006055

PATIENT
  Sex: Female
  Weight: 56.25 kg

DRUGS (3)
  1. LIPITOR [Suspect]
     Indication: BLOOD CHOLESTEROL INCREASED
     Route: 048
  2. LEVOXYL [Concomitant]
     Indication: HYPOTHYROIDISM
  3. NIFEDIPINE [Concomitant]
     Indication: HYPERTENSION

REACTIONS (1)
  - PAIN IN EXTREMITY [None]
